FAERS Safety Report 13983602 (Version 1)
Quarter: 2017Q3

REPORT INFORMATION
  Report Type: Spontaneous
  Country: US (occurrence: US)
  Receive Date: 20170918
  Receipt Date: 20170918
  Transmission Date: 20171128
  Serious: Yes (Death, Hospitalization, Other)
  Sender: FDA-Public Use
  Company Number: US-FRESENIUS MEDICAL CARE RENAL THERAPIES GROUP-FMC-1709-001064

PATIENT
  Age: 85 Year
  Sex: Female

DRUGS (6)
  1. MIDODRINE [Concomitant]
     Active Substance: MIDODRINE
  2. METOPROLOL. [Concomitant]
     Active Substance: METOPROLOL
  3. DELFLEX [Suspect]
     Active Substance: CALCIUM CHLORIDE\DEXTROSE\MAGNESIUM CHLORIDE\SODIUM CHLORIDE\SODIUM LACTATE
     Indication: END STAGE RENAL DISEASE
     Route: 033
  4. DIGOXIN. [Concomitant]
     Active Substance: DIGOXIN
  5. COUMADIN [Concomitant]
     Active Substance: WARFARIN SODIUM
  6. AMIODARONE [Concomitant]
     Active Substance: AMIODARONE

REACTIONS (3)
  - Peritonitis bacterial [Recovering/Resolving]
  - Blood pressure abnormal [Not Recovered/Not Resolved]
  - Cardiac arrest [Fatal]

NARRATIVE: CASE EVENT DATE: 20170807
